FAERS Safety Report 26122017 (Version 1)
Quarter: 2025Q4

REPORT INFORMATION
  Report Type: Spontaneous
  Country: EU (occurrence: EU)
  Receive Date: 20251204
  Receipt Date: 20251204
  Transmission Date: 20260119
  Serious: Yes (Life-Threatening, Hospitalization)
  Sender: PFIZER
  Company Number: EU-PFIZER INC-202500235585

PATIENT
  Age: 54 Year
  Sex: Female
  Weight: 65 kg

DRUGS (2)
  1. CARBOPLATIN [Suspect]
     Active Substance: CARBOPLATIN
     Indication: Endometrial adenocarcinoma
     Dosage: 1ST COURSE, WELL TOLERATED AT REDUCED SPEED
     Dates: start: 20250929, end: 20250929
  2. CARBOPLATIN [Suspect]
     Active Substance: CARBOPLATIN
     Dosage: 460 MG OVER 1 HOUR - DOSE ACTUALLY ADMINISTERED = 13.8 MG
     Route: 042
     Dates: start: 20251028, end: 20251028

REACTIONS (4)
  - Off label use [Recovered/Resolved]
  - Contraindicated product administered [Recovered/Resolved]
  - Anaphylactic shock [Recovered/Resolved]
  - Product use issue [Unknown]

NARRATIVE: CASE EVENT DATE: 20250929
